FAERS Safety Report 23559178 (Version 7)
Quarter: 2025Q2

REPORT INFORMATION
  Report Type: Spontaneous
  Country: US (occurrence: US)
  Receive Date: 20240223
  Receipt Date: 20250625
  Transmission Date: 20250717
  Serious: Yes (Disabling, Other)
  Sender: ABBVIE
  Company Number: US-ABBVIE-5649521

PATIENT
  Age: 56 Year
  Sex: Female
  Weight: 83 kg

DRUGS (33)
  1. HUMIRA [Suspect]
     Active Substance: ADALIMUMAB
     Indication: Hidradenitis
     Dosage: FORM STRENGTH: 40 MILLIGRAM
     Route: 058
     Dates: start: 2021, end: 202212
  2. HUMIRA [Suspect]
     Active Substance: ADALIMUMAB
     Route: 058
     Dates: start: 2016, end: 2017
  3. HUMIRA [Suspect]
     Active Substance: ADALIMUMAB
     Route: 058
     Dates: start: 2015, end: 2015
  4. HUMIRA [Suspect]
     Active Substance: ADALIMUMAB
     Route: 058
  5. HUMIRA [Suspect]
     Active Substance: ADALIMUMAB
     Dosage: FORM STRENGTH: 40 MILLIGRAM?TWO 40 MILLIGRAM PENS
     Route: 058
     Dates: end: 202301
  6. HUMIRA [Suspect]
     Active Substance: ADALIMUMAB
     Route: 058
  7. KENALOG [Concomitant]
     Active Substance: TRIAMCINOLONE ACETONIDE
     Indication: Eczema
  8. DIOVAN HCT [Concomitant]
     Active Substance: HYDROCHLOROTHIAZIDE\VALSARTAN
     Indication: Hypertension
  9. FOLIC ACID [Concomitant]
     Active Substance: FOLIC ACID
     Indication: Lupus-like syndrome
  10. VITAMIN D [Concomitant]
     Active Substance: VITAMIN D NOS
     Indication: Pain
  11. MELOXICAM [Concomitant]
     Active Substance: MELOXICAM
     Indication: Lupus-like syndrome
  12. ATORVASTATIN [Concomitant]
     Active Substance: ATORVASTATIN
     Indication: Hyperlipidaemia
  13. DIOVAN HCT [Concomitant]
     Active Substance: HYDROCHLOROTHIAZIDE\VALSARTAN
     Indication: Hypertension
  14. LIPITOR [Concomitant]
     Active Substance: ATORVASTATIN CALCIUM
     Indication: Hyperlipidaemia
  15. ALBUTEROL [Concomitant]
     Active Substance: ALBUTEROL
     Indication: Asthma
  16. LEFLUNOMIDE [Concomitant]
     Active Substance: LEFLUNOMIDE
     Indication: Lupus-like syndrome
  17. CLINDAMYCIN [Concomitant]
     Active Substance: CLINDAMYCIN
     Indication: Hidradenitis
  18. HYDROCORTISONE [Concomitant]
     Active Substance: HYDROCORTISONE
     Indication: Hidradenitis
  19. PREDNISONE [Concomitant]
     Active Substance: PREDNISONE
     Indication: Lupus-like syndrome
  20. DOXYCYCLINE [Concomitant]
     Active Substance: DOXYCYCLINE
     Indication: Hidradenitis
  21. DIFLUCAN [Concomitant]
     Active Substance: FLUCONAZOLE
     Indication: Antifungal prophylaxis
  22. METHOTREXATE [Concomitant]
     Active Substance: METHOTREXATE
     Indication: Lupus-like syndrome
  23. COSENTYX [Concomitant]
     Active Substance: SECUKINUMAB
     Indication: Hidradenitis
     Dates: start: 202306
  24. PHENAZOPYRIDINE [Concomitant]
     Active Substance: PHENAZOPYRIDINE
     Indication: Product used for unknown indication
  25. OXYBUTYNIN [Concomitant]
     Active Substance: OXYBUTYNIN
     Indication: Product used for unknown indication
  26. NAPROXEN [Concomitant]
     Active Substance: NAPROXEN
     Indication: Pain
  27. AMLODIPINE BESYLATE [Concomitant]
     Active Substance: AMLODIPINE BESYLATE
     Indication: Product used for unknown indication
  28. FERROUS SULFATE [Concomitant]
     Active Substance: FERROUS SULFATE
     Indication: Product used for unknown indication
  29. TRIAMCINOLONE ACETONIDE [Concomitant]
     Active Substance: TRIAMCINOLONE ACETONIDE
     Indication: Product used for unknown indication
  30. KEFLEX [Concomitant]
     Active Substance: CEPHALEXIN
     Indication: Product used for unknown indication
  31. CLOBETASOL [Concomitant]
     Active Substance: CLOBETASOL
     Indication: Product used for unknown indication
  32. FLUCONAZOLE [Concomitant]
     Active Substance: FLUCONAZOLE
     Indication: Product used for unknown indication
  33. DICLOFENAC [Concomitant]
     Active Substance: DICLOFENAC
     Indication: Product used for unknown indication

REACTIONS (46)
  - Hidradenitis [Recovered/Resolved]
  - Asthenia [Recovered/Resolved]
  - Impaired driving ability [Recovered/Resolved]
  - Amnesia [Recovered/Resolved]
  - Pruritus [Recovered/Resolved]
  - Musculoskeletal disorder [Recovered/Resolved]
  - Rash [Recovered/Resolved]
  - Medication error [Recovered/Resolved]
  - Impaired work ability [Recovered/Resolved]
  - Migraine [Recovered/Resolved]
  - Pruritus [Recovered/Resolved]
  - Joint lock [Recovered/Resolved]
  - Pain in extremity [Recovered/Resolved]
  - Alopecia [Recovered/Resolved]
  - Cold sweat [Recovered/Resolved]
  - Headache [Not Recovered/Not Resolved]
  - Arthralgia [Recovered/Resolved]
  - Stomatitis [Recovered/Resolved]
  - Mobility decreased [Recovered/Resolved]
  - Pain in extremity [Recovered/Resolved]
  - Impaired healing [Recovered/Resolved]
  - Immunodeficiency [Recovered/Resolved]
  - Impaired quality of life [Recovered/Resolved]
  - Loss of personal independence in daily activities [Recovered/Resolved]
  - Hot flush [Recovered/Resolved]
  - Skin ulcer [Recovered/Resolved]
  - Lymphadenopathy [Recovered/Resolved]
  - Fatigue [Recovered/Resolved]
  - Memory impairment [Recovered/Resolved]
  - Ear pain [Recovered/Resolved]
  - Crying [Recovered/Resolved]
  - Frustration tolerance decreased [Recovered/Resolved]
  - Grip strength decreased [Recovered/Resolved]
  - Paraesthesia [Recovered/Resolved]
  - Pain [Recovering/Resolving]
  - Pruritus [Not Recovered/Not Resolved]
  - Oropharyngeal pain [Recovered/Resolved]
  - Arthralgia [Not Recovered/Not Resolved]
  - Bladder neoplasm [Not Recovered/Not Resolved]
  - Abdominal pain [Unknown]
  - Systemic lupus erythematosus [Recovered/Resolved]
  - Disability [Not Recovered/Not Resolved]
  - Amnesia [Unknown]
  - Asthenia [Unknown]
  - Impaired driving ability [Unknown]
  - Pruritus [Unknown]

NARRATIVE: CASE EVENT DATE: 20180101
